FAERS Safety Report 6945295-5 (Version None)
Quarter: 2010Q3

REPORT INFORMATION
  Report Type: 
  Country: None (occurrence: None)
  Receive Date: 20100827
  Receipt Date: 20100820
  Transmission Date: 20110219
  Serious: Yes (Other)
  Sender: FDA-Public Use
  Company Number: US-TEVA-217968USA

PATIENT
  Age: 61 Year
  Sex: Male

DRUGS (2)
  1. COPAXONE [Suspect]
     Indication: MULTIPLE SCLEROSIS
     Route: 058
     Dates: start: 20071201, end: 20091001
  2. INTERFERON BETA-1A [Suspect]
     Route: 030

REACTIONS (1)
  - PANCREATITIS [None]
